FAERS Safety Report 9196040 (Version 3)
Quarter: 2013Q3

REPORT INFORMATION
  Report Type: Spontaneous
  Country: US (occurrence: US)
  Receive Date: 20130328
  Receipt Date: 20130820
  Transmission Date: 20140515
  Serious: Yes (Hospitalization)
  Sender: FDA-Public Use
  Company Number: US-BAYER-2013-037886

PATIENT
  Age: 16 Year
  Sex: Female

DRUGS (5)
  1. YAZ [Suspect]
     Indication: ACNE
     Dosage: UNK
     Dates: start: 200901, end: 200905
  2. ZYRTEC [Concomitant]
     Indication: MULTIPLE ALLERGIES
  3. SUDAFED [Concomitant]
     Indication: MULTIPLE ALLERGIES
  4. AMOXICILLIN [Concomitant]
     Dosage: 875 MG, ONE TABLET TWICE DAILY FOR 10 DAYS
  5. MOTRIN [Concomitant]
     Dosage: 400 MG, UNK

REACTIONS (4)
  - Transient ischaemic attack [None]
  - Pain [None]
  - Pain [None]
  - Migraine [None]
